FAERS Safety Report 5889176-7 (Version None)
Quarter: 2008Q3

REPORT INFORMATION
  Report Type: 
  Country: None (occurrence: None)
  Receive Date: 20080917
  Receipt Date: 20080904
  Transmission Date: 20090109
  Serious: Yes (Hospitalization)
  Sender: FDA-Public Use
  Company Number: 1000000957

PATIENT
  Age: 56 Year
  Sex: Female

DRUGS (2)
  1. CITALOPRAM HYDROBROMIDE [Suspect]
     Dosage: 40 MG
  2. OLANZAPINE [Suspect]
     Dosage: 15 MG

REACTIONS (6)
  - COMA [None]
  - DRUG TOXICITY [None]
  - MULTIPLE DRUG OVERDOSE [None]
  - PYREXIA [None]
  - RESPIRATORY DEPRESSION [None]
  - TACHYCARDIA [None]
